FAERS Safety Report 4761917-1 (Version None)
Quarter: 2005Q3

REPORT INFORMATION
  Report Type: 
  Country: None (occurrence: None)
  Receive Date: 20050831
  Receipt Date: 20050322
  Transmission Date: 20060218
  Serious: Yes (Hospitalization)
  Sender: FDA-Public Use
  Company Number: 242618

PATIENT
  Age: 83 Year
  Sex: Male
  Weight: 81.6 kg

DRUGS (2)
  1. NOVOLIN 70/30 [Suspect]
     Indication: INSULIN-REQUIRING TYPE II DIABETES MELLITUS
     Dosage: 50 IU, QD, SUBCUTANEOUS
     Route: 058
     Dates: start: 20050218, end: 20050226
  2. NOVOPEN 3 (INSULIN DELIVERY DEVICE) [Concomitant]

REACTIONS (1)
  - BLOOD GLUCOSE DECREASED [None]
